FAERS Safety Report 12737451 (Version 1)
Quarter: 2016Q3

REPORT INFORMATION
  Report Type: Spontaneous
  Country: US (occurrence: US)
  Receive Date: 20160913
  Receipt Date: 20160913
  Transmission Date: 20161109
  Serious: No
  Sender: FDA-Public Use
  Company Number: US-ASTRAZENECA-2016SE59099

PATIENT
  Age: 73 Year
  Sex: Female
  Weight: 86.2 kg

DRUGS (11)
  1. SPIRIVA [Concomitant]
     Active Substance: TIOTROPIUM BROMIDE MONOHYDRATE
  2. ANTIBIOTICS [Concomitant]
     Active Substance: UNSPECIFIED INGREDIENT
  3. PULMICORT RESPULES [Suspect]
     Active Substance: BUDESONIDE
     Indication: DYSPNOEA
     Dosage: TWO PUFFS TWICE A DAY
     Route: 055
     Dates: start: 2014
  4. ESTRADIOL TRANSDERMAL SYSTEM [Concomitant]
     Active Substance: ESTRADIOL
     Indication: ILL-DEFINED DISORDER
     Route: 003
     Dates: start: 1985
  5. PULMICORT RESPULES [Suspect]
     Active Substance: BUDESONIDE
     Indication: DYSPNOEA
     Dosage: AS NEEDED, 1 VIAL, FREQUENCY UNKNOWN
     Route: 055
     Dates: start: 2006
  6. OMEPRAZOLE. [Suspect]
     Active Substance: OMEPRAZOLE
     Indication: GASTROOESOPHAGEAL REFLUX DISEASE
     Dosage: 20 MG ONLY AS NEEDED
     Route: 048
     Dates: start: 2006
  7. FUROSEMIDE. [Concomitant]
     Active Substance: FUROSEMIDE
  8. OMEPRAZOLE. [Suspect]
     Active Substance: OMEPRAZOLE
     Indication: GASTROOESOPHAGEAL REFLUX DISEASE
     Dosage: SOMETIMES SHE TAKES TWO OF THEM
     Route: 048
     Dates: start: 2006
  9. FUROSEMIDE. [Concomitant]
     Active Substance: FUROSEMIDE
     Indication: SWELLING
     Route: 048
     Dates: start: 2007
  10. VITAMIN D [Concomitant]
     Active Substance: CHOLECALCIFEROL
     Indication: ILL-DEFINED DISORDER
     Route: 048
  11. LOSARTAN. [Concomitant]
     Active Substance: LOSARTAN
     Indication: BLOOD PRESSURE ABNORMAL
     Route: 048

REACTIONS (25)
  - Bronchitis [Unknown]
  - Vertigo [Unknown]
  - Blood cholesterol increased [Unknown]
  - Gait disturbance [Recovered/Resolved]
  - Weight fluctuation [Unknown]
  - Muscle spasms [Not Recovered/Not Resolved]
  - Product use issue [Unknown]
  - Swelling [Unknown]
  - Blood pressure decreased [Recovered/Resolved]
  - Intentional product misuse [Unknown]
  - Eating disorder [Recovered/Resolved]
  - Asthenia [Recovered/Resolved]
  - Fatigue [Recovered/Resolved]
  - Dizziness [Unknown]
  - Balance disorder [Not Recovered/Not Resolved]
  - Skin discolouration [Unknown]
  - Body height decreased [Unknown]
  - Dyspnoea [Not Recovered/Not Resolved]
  - Feeling abnormal [Recovered/Resolved]
  - Neuropathy peripheral [Unknown]
  - Acne [Unknown]
  - Somnolence [Recovered/Resolved]
  - Pancreatitis [Unknown]
  - Skin atrophy [Unknown]
  - Off label use [Unknown]

NARRATIVE: CASE EVENT DATE: 2007
